FAERS Safety Report 24202500 (Version 6)
Quarter: 2025Q1

REPORT INFORMATION
  Report Type: Report from Study
  Country: JP (occurrence: JP)
  Receive Date: 20240813
  Receipt Date: 20250221
  Transmission Date: 20250408
  Serious: No
  Sender: TAKEDA
  Company Number: JP-TAKEDA-2024TJP010361

PATIENT
  Age: 16 Year
  Sex: Female

DRUGS (4)
  1. TEDUGLUTIDE [Suspect]
     Active Substance: TEDUGLUTIDE
     Indication: Short-bowel syndrome
     Dosage: UNK, QD
     Dates: start: 20240708
  2. TEDUGLUTIDE [Suspect]
     Active Substance: TEDUGLUTIDE
  3. TEDUGLUTIDE [Suspect]
     Active Substance: TEDUGLUTIDE
  4. TEDUGLUTIDE [Suspect]
     Active Substance: TEDUGLUTIDE

REACTIONS (5)
  - Injection site pain [Not Recovered/Not Resolved]
  - Vomiting [Not Recovered/Not Resolved]
  - Skin erosion [Recovering/Resolving]
  - Gastrointestinal stoma output abnormal [Not Recovered/Not Resolved]
  - Influenza [Unknown]

NARRATIVE: CASE EVENT DATE: 20240708
